FAERS Safety Report 17928526 (Version 1)
Quarter: 2020Q2

REPORT INFORMATION
  Report Type: Spontaneous
  Country: US (occurrence: US)
  Receive Date: 20200622
  Receipt Date: 20200622
  Transmission Date: 20200714
  Serious: Yes (Hospitalization)
  Sender: FDA-Public Use
  Company Number: None

PATIENT
  Sex: Female

DRUGS (2)
  1. CAPECITABINE 500MG [Suspect]
     Active Substance: CAPECITABINE
     Indication: PERITONEAL DISORDER
     Dosage: ?          OTHER FREQUENCY:EVERY EVENING;?
     Route: 048
  2. CAPECITABINE 500MG [Suspect]
     Active Substance: CAPECITABINE
     Indication: PERITONEAL DISORDER
     Dosage: ?          OTHER FREQUENCY:EVERY MORNING;?
     Route: 048
     Dates: start: 202002

REACTIONS (1)
  - Intestinal obstruction [None]
